FAERS Safety Report 7749911-X (Version None)
Quarter: 2011Q3

REPORT INFORMATION
  Report Type: 
  Country: None (occurrence: None)
  Receive Date: 20110907
  Receipt Date: 20110825
  Transmission Date: 20111222
  Serious: Yes (Other)
  Sender: FDA-Public Use
  Company Number: 2011SP040154

PATIENT
  Age: 31 Year
  Sex: Female

DRUGS (1)
  1. ELOCON [Suspect]
     Indication: DERMATITIS
     Dosage: BID;TOP
     Route: 061

REACTIONS (4)
  - DYSAESTHESIA [None]
  - WITHDRAWAL SYNDROME [None]
  - BURNING SENSATION [None]
  - DRUG DEPENDENCE [None]
